FAERS Safety Report 14996227 (Version 1)
Quarter: 2018Q2

REPORT INFORMATION
  Report Type: Spontaneous
  Country: JP (occurrence: JP)
  Receive Date: 20180611
  Receipt Date: 20180611
  Transmission Date: 20180711
  Serious: Yes (Hospitalization)
  Sender: FDA-Public Use
  Company Number: JP-BAYER-2018-105262

PATIENT
  Age: 81 Year
  Sex: Male

DRUGS (2)
  1. XOFIGO [Suspect]
     Active Substance: RADIUM RA-223 DICHLORIDE
     Indication: HORMONE-REFRACTORY PROSTATE CANCER
     Dosage: UNK
     Route: 042
     Dates: start: 20171127, end: 20180416
  2. ZYTIGA [Concomitant]
     Active Substance: ABIRATERONE ACETATE

REACTIONS (1)
  - Compression fracture [Unknown]

NARRATIVE: CASE EVENT DATE: 20180423
